FAERS Safety Report 7709333-4 (Version None)
Quarter: 2011Q3

REPORT INFORMATION
  Report Type: 
  Country: None (occurrence: None)
  Receive Date: 20110818
  Receipt Date: 20110811
  Transmission Date: 20111222
  Serious: Yes (Hospitalization)
  Sender: FDA-Public Use
  Company Number: 2011SP038079

PATIENT
  Age: 41 Year
  Sex: Male

DRUGS (5)
  1. SULPIRIDE [Concomitant]
  2. MIRTAZAPINE [Suspect]
     Indication: DEPRESSION
     Dosage: 15 MG;QD;PO
     Route: 048
     Dates: start: 20110126, end: 20110221
  3. TRAZODONE HYDROCHLORIDE [Concomitant]
  4. CLONAZEPAM [Concomitant]
  5. SEROQUEL [Concomitant]

REACTIONS (4)
  - ALTERED STATE OF CONSCIOUSNESS [None]
  - PARKINSONISM [None]
  - CARBON MONOXIDE POISONING [None]
  - DYSPHAGIA [None]
